FAERS Safety Report 17202609 (Version 1)
Quarter: 2019Q4

REPORT INFORMATION
  Report Type: Report from Study
  Country: US (occurrence: US)
  Receive Date: 20191226
  Receipt Date: 20191226
  Transmission Date: 20200122
  Serious: Yes (Other)
  Sender: FDA-Public Use
  Company Number: US-GLAXOSMITHKLINE-US2019TSO191998

PATIENT
  Sex: Female

DRUGS (2)
  1. NIRAPARIB [Suspect]
     Active Substance: NIRAPARIB
     Dosage: 300 MG PM TAKE ANTI NAUSEA PILL AND CRACKER WITH MEDICATION
  2. NIRAPARIB [Suspect]
     Active Substance: NIRAPARIB
     Indication: FALLOPIAN TUBE CANCER
     Dosage: 300 MG, QD
     Route: 048
     Dates: start: 20190924

REACTIONS (9)
  - Blood count abnormal [Unknown]
  - Dyspnoea [Unknown]
  - Fatigue [Not Recovered/Not Resolved]
  - Asthenia [Not Recovered/Not Resolved]
  - Tumour marker increased [Unknown]
  - Constipation [Not Recovered/Not Resolved]
  - Recurrent cancer [Unknown]
  - Tremor [Not Recovered/Not Resolved]
  - Abdominal distension [Unknown]
